FAERS Safety Report 16112743 (Version 1)
Quarter: 2019Q1

REPORT INFORMATION
  Report Type: Spontaneous
  Country: FR (occurrence: FR)
  Receive Date: 20190325
  Receipt Date: 20190325
  Transmission Date: 20190418
  Serious: Yes (Other)
  Sender: FDA-Public Use
  Company Number: FR-PROVELL PHARMACEUTICALS-2064503

PATIENT
  Age: 62 Year
  Sex: Female

DRUGS (1)
  1. EUTHYROX [Suspect]
     Active Substance: LEVOTHYROXINE SODIUM
     Indication: THYROID DISORDER
     Dates: start: 201703, end: 201710

REACTIONS (7)
  - General physical health deterioration [None]
  - Malaise [None]
  - Gastrointestinal disorder [None]
  - Anxiety [None]
  - Alopecia [None]
  - Blood pressure increased [None]
  - Vestibular neuronitis [None]

NARRATIVE: CASE EVENT DATE: 2017
